FAERS Safety Report 23046580 (Version 1)
Quarter: 2023Q4

REPORT INFORMATION
  Report Type: Spontaneous
  Country: US (occurrence: US)
  Receive Date: 20231009
  Receipt Date: 20231009
  Transmission Date: 20240110
  Serious: No
  Sender: FDA-Public Use
  Company Number: US-MYLANLABS-2023M1103296

PATIENT
  Sex: Male

DRUGS (1)
  1. EMSAM [Suspect]
     Active Substance: SELEGILINE
     Indication: Psychiatric symptom
     Dosage: 12 MILLIGRAM, QD (12MG/24HRS 1 PATCH A DAY)
     Route: 062

REACTIONS (1)
  - Product use issue [Unknown]
